FAERS Safety Report 6889821-3 (Version None)
Quarter: 2010Q3

REPORT INFORMATION
  Report Type: 
  Country: None (occurrence: None)
  Receive Date: 20100730
  Receipt Date: 20080515
  Transmission Date: 20110219
  Serious: No
  Sender: FDA-Public Use
  Company Number: US-PFIZER INC-2008042189

PATIENT

DRUGS (2)
  1. LIPITOR [Suspect]
  2. ZOCOR [Suspect]

REACTIONS (3)
  - ARTHRALGIA [None]
  - ARTHROPATHY [None]
  - MYALGIA [None]
